FAERS Safety Report 8066952-6 (Version None)
Quarter: 2012Q1

REPORT INFORMATION
  Report Type: 
  Country: None (occurrence: None)
  Receive Date: 20120124
  Receipt Date: 20120113
  Transmission Date: 20120608
  Serious: Yes (Hospitalization, Disabling, Other)
  Sender: FDA-Public Use
  Company Number: US-MERCK-1106USA02212

PATIENT
  Age: 31 Year
  Sex: Female
  Weight: 71 kg

DRUGS (3)
  1. FOSAMAX [Suspect]
     Indication: OSTEOPOROSIS
     Route: 048
     Dates: start: 19961201
  2. ALENDRONATE SODIUM [Suspect]
     Indication: OSTEOPENIA
     Route: 048
  3. BONIVA [Suspect]
     Indication: OSTEOPOROSIS
     Route: 065
     Dates: start: 20101001, end: 20110201

REACTIONS (88)
  - ADVERSE DRUG REACTION [None]
  - CHEST PAIN [None]
  - GASTRITIS [None]
  - INTERVERTEBRAL DISC DISORDER [None]
  - INJURY [None]
  - CARPAL TUNNEL SYNDROME [None]
  - RADICULOPATHY [None]
  - OESOPHAGEAL ULCER [None]
  - FOOT DEFORMITY [None]
  - FALL [None]
  - DYSPHAGIA [None]
  - BRONCHITIS [None]
  - TIBIA FRACTURE [None]
  - SPINAL FRACTURE [None]
  - INCONTINENCE [None]
  - URINARY INCONTINENCE [None]
  - ASTHMA [None]
  - VOMITING [None]
  - SPINAL DISORDER [None]
  - MENOPAUSE [None]
  - BREAST PROSTHESIS IMPLANTATION [None]
  - OSTEOPOROSIS [None]
  - HEMIPARESIS [None]
  - THORACIC VERTEBRAL FRACTURE [None]
  - IMMUNODEFICIENCY [None]
  - HERPES VIRUS INFECTION [None]
  - BURSITIS [None]
  - TENDERNESS [None]
  - SYNCOPE [None]
  - ACQUIRED OESOPHAGEAL WEB [None]
  - HEADACHE [None]
  - GASTROOESOPHAGEAL REFLUX DISEASE [None]
  - FRACTURE [None]
  - COUGH [None]
  - CONSTIPATION [None]
  - VITAMIN D DEFICIENCY [None]
  - VISION BLURRED [None]
  - RIB FRACTURE [None]
  - MENTAL DISORDER [None]
  - PIRIFORMIS SYNDROME [None]
  - PERINEURIAL CYST [None]
  - OESOPHAGEAL SPASM [None]
  - ATELECTASIS [None]
  - DYSPNOEA [None]
  - MUSCULAR WEAKNESS [None]
  - UTERINE LEIOMYOMA [None]
  - ABDOMINAL PAIN [None]
  - ABDOMINOPLASTY [None]
  - BACK PAIN [None]
  - COLONIC POLYP [None]
  - HAEMORRHOIDS [None]
  - HIATUS HERNIA [None]
  - OEDEMA PERIPHERAL [None]
  - SPINAL COLUMN INJURY [None]
  - OESTROGEN DEFICIENCY [None]
  - NEUROPATHY PERIPHERAL [None]
  - FRACTURED COCCYX [None]
  - DIZZINESS [None]
  - DIPLOPIA [None]
  - BARRETT'S OESOPHAGUS [None]
  - ENDOMETRIOSIS [None]
  - DEPRESSION [None]
  - PRURITUS [None]
  - FIBROMYALGIA [None]
  - DYSMENORRHOEA [None]
  - GAIT DISTURBANCE [None]
  - FOOT FRACTURE [None]
  - OVARIAN CYST [None]
  - LOW TURNOVER OSTEOPATHY [None]
  - INTERVERTEBRAL DISC DEGENERATION [None]
  - POLLAKIURIA [None]
  - TOOTH DISORDER [None]
  - DYSTONIA [None]
  - DEHYDRATION [None]
  - MENISCUS LESION [None]
  - STRESS FRACTURE [None]
  - INTERVERTEBRAL DISC PROTRUSION [None]
  - DEPRESSIVE SYMPTOM [None]
  - COMPLEX REGIONAL PAIN SYNDROME [None]
  - LOSS OF CONSCIOUSNESS [None]
  - LIPOSUCTION [None]
  - ARTHROPATHY [None]
  - URINARY TRACT INFECTION [None]
  - ARTHRALGIA [None]
  - SCIATICA [None]
  - DYSURIA [None]
  - CALCIUM DEFICIENCY [None]
  - ADVERSE EVENT [None]
